APPROVED DRUG PRODUCT: SODIUM SULFATE, POTASSIUM SULFATE AND MAGNESIUM SULFATE
Active Ingredient: MAGNESIUM SULFATE; POTASSIUM SULFATE; SODIUM SULFATE
Strength: 1.6GM/BOT;3.13GM/BOT;17.5GM/BOT
Dosage Form/Route: SOLUTION;ORAL
Application: A213924 | Product #001 | TE Code: AA
Applicant: ALKEM LABORATORIES LTD
Approved: Dec 29, 2023 | RLD: No | RS: No | Type: RX